FAERS Safety Report 4928515-8 (Version None)
Quarter: 2006Q1

REPORT INFORMATION
  Report Type: 
  Country: None (occurrence: None)
  Receive Date: 20060127
  Receipt Date: 20051031
  Transmission Date: 20060701
  Serious: Yes (Other)
  Sender: FDA-Public Use
  Company Number: 2005150855

PATIENT
  Age: 88 Year
  Sex: Female
  Weight: 63.5036 kg

DRUGS (7)
  1. LYRICA [Suspect]
     Indication: ILL-DEFINED DISORDER
     Dosage: 150 MG (50 MG,3 I IN 1 D),ORAL
     Route: 048
     Dates: start: 20051027, end: 20051031
  2. PRENISONE (PREDNISONE) [Concomitant]
  3. AMBIEN [Concomitant]
  4. DARVOCET [Concomitant]
  5. ZANTAC [Concomitant]
  6. REGLAN [Concomitant]
  7. LISINOPRIL [Concomitant]

REACTIONS (1)
  - DYSPNOEA [None]
